FAERS Safety Report 8538472-3 (Version None)
Quarter: 2012Q3

REPORT INFORMATION
  Report Type: 
  Country: None (occurrence: None)
  Receive Date: 20120718
  Receipt Date: 20120718
  Transmission Date: 20120928
  Serious: Yes (Disabling)
  Sender: FDA-Public Use
  Company Number: None

PATIENT

DRUGS (1)
  1. CIPROFLOXACIN [Suspect]
     Indication: URINARY TRACT INFECTION
     Dosage: 2 EVERY 12 HR
     Dates: start: 20120124, end: 20120203

REACTIONS (9)
  - EYE DISORDER [None]
  - WEIGHT BEARING DIFFICULTY [None]
  - URINARY TRACT INFECTION [None]
  - MUSCULOSKELETAL PAIN [None]
  - ASTHENIA [None]
  - DIZZINESS [None]
  - PAIN IN EXTREMITY [None]
  - FACE OEDEMA [None]
  - VISION BLURRED [None]
